FAERS Safety Report 16735747 (Version 1)
Quarter: 2019Q3

REPORT INFORMATION
  Report Type: Report from Study
  Country: US (occurrence: US)
  Receive Date: 20190823
  Receipt Date: 20190823
  Transmission Date: 20191005
  Serious: Yes (Hospitalization)
  Sender: FDA-Public Use
  Company Number: US-JNJFOC-20160118580

PATIENT
  Age: 62 Year
  Sex: Male

DRUGS (19)
  1. FUROSEMIDE. [Concomitant]
     Active Substance: FUROSEMIDE
  2. IMBRUVICA [Suspect]
     Active Substance: IBRUTINIB
     Route: 048
     Dates: start: 201707
  3. IMODIUM [Concomitant]
     Active Substance: LOPERAMIDE HYDROCHLORIDE
  4. LOSARTAN. [Concomitant]
     Active Substance: LOSARTAN
  5. VITAMIN B12 [Concomitant]
     Active Substance: CYANOCOBALAMIN
  6. VITAMINE D [Concomitant]
     Active Substance: CHOLECALCIFEROL
  7. POTASSIUM [Concomitant]
     Active Substance: POTASSIUM
  8. CINNAMON. [Concomitant]
     Active Substance: CINNAMON
  9. PRILOSEC [Concomitant]
     Active Substance: OMEPRAZOLE MAGNESIUM
  10. MELATONIN [Concomitant]
     Active Substance: MELATONIN
  11. AMLODIPINE [Concomitant]
     Active Substance: AMLODIPINE BESYLATE
  12. DOXAZOSIN [Concomitant]
     Active Substance: DOXAZOSIN MESYLATE
  13. IMBRUVICA [Suspect]
     Active Substance: IBRUTINIB
     Indication: CHRONIC LYMPHOCYTIC LEUKAEMIA
     Route: 048
     Dates: start: 20151109
  14. IMBRUVICA [Suspect]
     Active Substance: IBRUTINIB
     Route: 048
     Dates: start: 201709
  15. IMBRUVICA [Suspect]
     Active Substance: IBRUTINIB
     Route: 048
     Dates: start: 201806
  16. METOPROLOL. [Concomitant]
     Active Substance: METOPROLOL
  17. PHENERGAN [Concomitant]
     Active Substance: PROMETHAZINE HYDROCHLORIDE
  18. IMBRUVICA [Suspect]
     Active Substance: IBRUTINIB
     Route: 065
     Dates: start: 2016
  19. PROSCAR [Concomitant]
     Active Substance: FINASTERIDE

REACTIONS (5)
  - Platelet count decreased [Not Recovered/Not Resolved]
  - Rash macular [Not Recovered/Not Resolved]
  - White blood cell count increased [Recovered/Resolved]
  - Dyspnoea exertional [Unknown]
  - Haemoglobin decreased [Recovered/Resolved]

NARRATIVE: CASE EVENT DATE: 20151201
